FAERS Safety Report 12695996 (Version 1)
Quarter: 2016Q3

REPORT INFORMATION
  Report Type: Spontaneous
  Country: US (occurrence: US)
  Receive Date: 20160829
  Receipt Date: 20160829
  Transmission Date: 20161109
  Serious: Yes (Hospitalization, Other)
  Sender: FDA-Public Use
  Company Number: US-RELYPSA-RLY2016001967

PATIENT
  Age: 88 Year
  Sex: Male

DRUGS (10)
  1. LACTULOSE. [Concomitant]
     Active Substance: LACTULOSE
  2. MAGNESIUM [Concomitant]
     Active Substance: MAGNESIUM
  3. ALLOPURINOL. [Concomitant]
     Active Substance: ALLOPURINOL
  4. VITAMIN D3 [Concomitant]
     Active Substance: CHOLECALCIFEROL
  5. ADVAIR DISKUS [Concomitant]
     Active Substance: FLUTICASONE PROPIONATE\SALMETEROL XINAFOATE
  6. TRAMADOL HCL ER [Concomitant]
  7. VELTASSA [Suspect]
     Active Substance: PATIROMER
     Indication: HYPERKALAEMIA
     Dosage: 16.8 G, QD
     Route: 048
     Dates: end: 201606
  8. ATENOLOL. [Concomitant]
     Active Substance: ATENOLOL
  9. FISH OIL [Concomitant]
     Active Substance: FISH OIL
  10. LASIX [Concomitant]
     Active Substance: FUROSEMIDE

REACTIONS (4)
  - Cardiac failure congestive [Recovered/Resolved]
  - Pulmonary oedema [Recovered/Resolved]
  - Myocardial infarction [Unknown]
  - Fatigue [Unknown]

NARRATIVE: CASE EVENT DATE: 20160807
